FAERS Safety Report 4576091-4 (Version None)
Quarter: 2005Q1

REPORT INFORMATION
  Report Type: 
  Country: None (occurrence: None)
  Receive Date: 20050201
  Receipt Date: 20050201
  Transmission Date: 20050727
  Serious: Yes (Other)
  Sender: FDA-Public Use
  Company Number: None

PATIENT
  Sex: Female
  Weight: 70.3075 kg

DRUGS (2)
  1. CITALOPRAM HBR    20 MG    CIPLA -WATSON- [Suspect]
     Indication: ANGER
     Dosage: 20 MG   ONCE DAILY    ORAL
     Route: 048
     Dates: start: 20041230, end: 20050129
  2. CITALOPRAM HBR    20 MG    CIPLA -WATSON- [Suspect]
     Indication: DEPRESSION
     Dosage: 20 MG   ONCE DAILY    ORAL
     Route: 048
     Dates: start: 20041230, end: 20050129

REACTIONS (5)
  - DRUG EFFECT DECREASED [None]
  - MENTAL IMPAIRMENT [None]
  - MOOD SWINGS [None]
  - PHARMACEUTICAL PRODUCT COMPLAINT [None]
  - SLEEP DISORDER [None]
